FAERS Safety Report 18408971 (Version 6)
Quarter: 2023Q2

REPORT INFORMATION
  Report Type: Spontaneous
  Country: US (occurrence: US)
  Receive Date: 20201021
  Receipt Date: 20230424
  Transmission Date: 20230721
  Serious: Yes (Other)
  Sender: FDA-Public Use
  Company Number: US-GILEAD-2020-0499782

PATIENT
  Sex: Female
  Weight: 105.67 kg

DRUGS (22)
  1. TRUVADA [Suspect]
     Active Substance: EMTRICITABINE\TENOFOVIR DISOPROXIL FUMARATE
     Indication: HIV infection
     Dosage: UNK
     Route: 048
     Dates: start: 200905, end: 2017
  2. BIKTARVY [Concomitant]
     Active Substance: BICTEGRAVIR SODIUM\EMTRICITABINE\TENOFOVIR ALAFENAMIDE FUMARATE
  3. DESCOVY [Concomitant]
     Active Substance: EMTRICITABINE\TENOFOVIR ALAFENAMIDE FUMARATE
  4. VITAMIN D NOS [Concomitant]
     Active Substance: VITAMIN D NOS
  5. NORVIR [Concomitant]
     Active Substance: RITONAVIR
  6. ISENTRESS [Concomitant]
     Active Substance: RALTEGRAVIR POTASSIUM
  7. PREZISTA [Concomitant]
     Active Substance: DARUNAVIR ETHANOLATE
  8. PREZCOBIX [Concomitant]
     Active Substance: COBICISTAT\DARUNAVIR ETHANOLATE
  9. TRIUMEQ [Concomitant]
     Active Substance: ABACAVIR SULFATE\DOLUTEGRAVIR SODIUM\LAMIVUDINE
  10. ALBUTEROL SULFATE [Concomitant]
     Active Substance: ALBUTEROL SULFATE
  11. AMLODIPINE [Concomitant]
     Active Substance: AMLODIPINE BESYLATE
  12. ASPIRIN [Concomitant]
     Active Substance: ASPIRIN
  13. DICLOFENAC [Concomitant]
     Active Substance: DICLOFENAC
  14. EDURANT [Concomitant]
     Active Substance: RILPIVIRINE HYDROCHLORIDE
  15. FOLIC ACID [Concomitant]
     Active Substance: FOLIC ACID
  16. HYDROCODONE [Concomitant]
     Active Substance: HYDROCODONE
  17. LAMOTRIGINE [Concomitant]
     Active Substance: LAMOTRIGINE
  18. LYRICA [Concomitant]
     Active Substance: PREGABALIN
  19. OZEMPIC [Concomitant]
     Active Substance: SEMAGLUTIDE
  20. TRAZODONE [Concomitant]
     Active Substance: TRAZODONE HYDROCHLORIDE
  21. VITAMIN B1+B6+B12 [Concomitant]
  22. WELLBUTRIN [Concomitant]
     Active Substance: BUPROPION HYDROCHLORIDE

REACTIONS (10)
  - Chronic kidney disease [Unknown]
  - Osteoporosis [Not Recovered/Not Resolved]
  - Multiple fractures [Unknown]
  - Bipolar disorder [Not Recovered/Not Resolved]
  - Emotional distress [Not Recovered/Not Resolved]
  - Mobility decreased [Not Recovered/Not Resolved]
  - Anhedonia [Not Recovered/Not Resolved]
  - Bone density decreased [Unknown]
  - Protein urine present [Unknown]
  - Pain [Not Recovered/Not Resolved]

NARRATIVE: CASE EVENT DATE: 20150101
